FAERS Safety Report 7418951-2 (Version None)
Quarter: 2011Q2

REPORT INFORMATION
  Report Type: 
  Country: None (occurrence: None)
  Receive Date: 20110415
  Receipt Date: 20110403
  Transmission Date: 20111010
  Serious: Yes (Life-Threatening, Other)
  Sender: FDA-Public Use
  Company Number: US-BAYER-201023969NA

PATIENT
  Age: 27 Year
  Sex: Female
  Weight: 58 kg

DRUGS (9)
  1. PROMETHAZINE W/ CODEINE [Concomitant]
     Dosage: UNK
     Route: 048
     Dates: start: 20061201
  2. VALTREX [Concomitant]
     Dosage: 1 G, UNK
     Route: 048
  3. METHYLPREDNISOLONE ACETATE [Concomitant]
     Dosage: UNK
     Dates: start: 20061201
  4. TORADOL [Concomitant]
     Dosage: 30 MG, UNK
     Route: 042
     Dates: start: 20061221
  5. VALIUM [Concomitant]
     Route: 048
  6. BIAXIN XL [Concomitant]
     Dosage: 500 MG, UNK
     Route: 048
     Dates: start: 20061201
  7. VICODIN [Concomitant]
     Route: 048
  8. ZOFRAN [Concomitant]
     Dosage: 4 MG, UNK
     Dates: start: 20061221
  9. YAZ [Suspect]
     Indication: PRODUCT USED FOR UNKNOWN INDICATION
     Route: 048

REACTIONS (1)
  - PULMONARY EMBOLISM [None]
